FAERS Safety Report 24553693 (Version 1)
Quarter: 2024Q4

REPORT INFORMATION
  Report Type: Spontaneous
  Country: US (occurrence: US)
  Receive Date: 20241028
  Receipt Date: 20241028
  Transmission Date: 20250114
  Serious: Yes (Hospitalization)
  Sender: ROCHE
  Company Number: US-ROCHE-10000115599

PATIENT
  Age: 56 Year
  Sex: Female

DRUGS (3)
  1. ACTEMRA ACTPEN [Suspect]
     Active Substance: TOCILIZUMAB
     Indication: Product used for unknown indication
     Dosage: 162MG/0.9M
     Route: 058
     Dates: start: 202310
  2. TYVASO [Concomitant]
     Active Substance: TREPROSTINIL
     Dosage: NEBULIZER
  3. OFEV [Concomitant]
     Active Substance: NINTEDANIB
     Indication: Interstitial lung disease

REACTIONS (2)
  - Malaise [Unknown]
  - White blood cell count increased [Unknown]

NARRATIVE: CASE EVENT DATE: 20241021
